FAERS Safety Report 13285192 (Version 2)
Quarter: 2017Q2

REPORT INFORMATION
  Report Type: Report from Study
  Country: ZA (occurrence: ZA)
  Receive Date: 20170301
  Receipt Date: 20170413
  Transmission Date: 20170830
  Serious: Yes (Death, Hospitalization, Other)
  Sender: FDA-Public Use
  Company Number: ZA-BAYER-2017-036555

PATIENT
  Age: 53 Year
  Sex: Female

DRUGS (2)
  1. NEXAVAR [Suspect]
     Active Substance: SORAFENIB
     Indication: HEPATOCELLULAR CARCINOMA
     Dosage: 400 MG, BID
     Route: 048
  2. NEXAVAR [Suspect]
     Active Substance: SORAFENIB
     Indication: HEPATOCELLULAR CARCINOMA
     Dosage: 400 MG, BID
     Route: 048
     Dates: start: 201607

REACTIONS (6)
  - Death [Fatal]
  - Metastases to central nervous system [None]
  - Drug dose omission [Not Recovered/Not Resolved]
  - Hepatocellular carcinoma [None]
  - Hepatocellular carcinoma [None]
  - Metastases to central nervous system [None]

NARRATIVE: CASE EVENT DATE: 20170117
